FAERS Safety Report 9890268 (Version 3)
Quarter: 2014Q1

REPORT INFORMATION
  Report Type: Spontaneous
  Country: JP (occurrence: JP)
  Receive Date: 20140212
  Receipt Date: 20140220
  Transmission Date: 20141002
  Serious: Yes (Other)
  Sender: FDA-Public Use
  Company Number: JP-ROCHE-1316338

PATIENT
  Age: 71 Year
  Sex: Male
  Weight: 70 kg

DRUGS (5)
  1. XELODA [Suspect]
     Indication: RECTAL CANCER
     Dosage: IT IS ONE ADMINISTERING WEEKLY HOLIDAY MEDICINE FOR TWO WEEKS.
     Route: 048
     Dates: start: 20130313, end: 201306
  2. XELODA [Suspect]
     Indication: RECTAL CANCER
     Dosage: IT IS ONE ADMINISTERING WEEKLY HOLIDAY MEDICINE FOR TWO WEEKS.
     Route: 048
     Dates: start: 20130619, end: 20130924
  3. AVASTIN [Suspect]
     Indication: RECTAL CANCER
     Dosage: DOSAGE IS UNCERTAIN.
     Route: 041
     Dates: start: 20130313, end: 20130910
  4. ELPLAT [Concomitant]
     Indication: RECTAL CANCER
     Route: 041
     Dates: start: 20130313, end: 201306
  5. ELPLAT [Concomitant]
     Indication: RECTAL CANCER
     Route: 041
     Dates: start: 20130619, end: 20130910

REACTIONS (3)
  - Bradycardia [Not Recovered/Not Resolved]
  - Palmar-plantar erythrodysaesthesia syndrome [Recovering/Resolving]
  - Oedema peripheral [Unknown]
